FAERS Safety Report 4842330-5 (Version None)
Quarter: 2005Q4

REPORT INFORMATION
  Report Type: 
  Country: None (occurrence: None)
  Receive Date: 20051129
  Receipt Date: 20051116
  Transmission Date: 20060501
  Serious: Yes (Other)
  Sender: FDA-Public Use
  Company Number: 2005152001

PATIENT
  Age: 67 Year
  Sex: Male
  Weight: 69 kg

DRUGS (2)
  1. IRINOTECAN HCL [Suspect]
     Indication: ILL-DEFINED DISORDER
     Dosage: INTRAVENOUS
     Route: 042
  2. ZOFRAN [Suspect]
     Indication: ILL-DEFINED DISORDER

REACTIONS (3)
  - APHASIA [None]
  - MUSCLE SPASMS [None]
  - TRISMUS [None]
